FAERS Safety Report 11372022 (Version 5)
Quarter: 2018Q1

REPORT INFORMATION
  Report Type: Report from Study
  Country: US (occurrence: US)
  Receive Date: 20150812
  Receipt Date: 20180212
  Transmission Date: 20180508
  Serious: Yes (Hospitalization, Other)
  Sender: FDA-Public Use
  Company Number: US-JNJFOC-20150808388

PATIENT
  Age: 84 Year
  Sex: Male

DRUGS (46)
  1. IMBRUVICA [Suspect]
     Active Substance: IBRUTINIB
     Indication: WALDENSTROM^S MACROGLOBULINAEMIA
     Route: 048
     Dates: start: 20141125, end: 20150729
  2. IMBRUVICA [Suspect]
     Active Substance: IBRUTINIB
     Indication: BONE CANCER
     Route: 048
  3. GABAPENTIN. [Concomitant]
     Active Substance: GABAPENTIN
  4. IPRATROPIUM [Concomitant]
     Active Substance: IPRATROPIUM
  5. FISH OIL [Concomitant]
     Active Substance: FISH OIL
  6. REQUIP [Concomitant]
     Active Substance: ROPINIROLE HYDROCHLORIDE
  7. IMBRUVICA [Suspect]
     Active Substance: IBRUTINIB
     Indication: BONE CANCER
     Route: 048
     Dates: start: 20140405
  8. IMBRUVICA [Suspect]
     Active Substance: IBRUTINIB
     Indication: PROSTATE CANCER
     Route: 048
  9. BEANO [Concomitant]
     Active Substance: ASPERGILLUS NIGER .ALPHA.-GALACTOSIDASE
  10. DONEPEZIL. [Concomitant]
     Active Substance: DONEPEZIL
  11. FLUOCINONIDE. [Concomitant]
     Active Substance: FLUOCINONIDE
  12. CALCIUM [Concomitant]
     Active Substance: CALCIUM
  13. CARDIZEM [Concomitant]
     Active Substance: DILTIAZEM HYDROCHLORIDE
  14. IMBRUVICA [Suspect]
     Active Substance: IBRUTINIB
     Indication: WALDENSTROM^S MACROGLOBULINAEMIA
     Route: 048
     Dates: start: 20140405
  15. IMBRUVICA [Suspect]
     Active Substance: IBRUTINIB
     Indication: PROSTATE CANCER
     Route: 048
     Dates: start: 20140427, end: 201407
  16. IMBRUVICA [Suspect]
     Active Substance: IBRUTINIB
     Indication: BONE CANCER
     Route: 048
     Dates: start: 20141125, end: 20150729
  17. LATANOPROST. [Concomitant]
     Active Substance: LATANOPROST
  18. IMBRUVICA [Suspect]
     Active Substance: IBRUTINIB
     Indication: WALDENSTROM^S MACROGLOBULINAEMIA
     Route: 048
     Dates: start: 201407, end: 20140908
  19. IMBRUVICA [Suspect]
     Active Substance: IBRUTINIB
     Indication: PROSTATE CANCER
     Route: 048
     Dates: start: 201407, end: 20140908
  20. VITAMIN D [Concomitant]
     Active Substance: CHOLECALCIFEROL
  21. NAMENDA [Concomitant]
     Active Substance: MEMANTINE HYDROCHLORIDE
  22. CASODEX [Concomitant]
     Active Substance: BICALUTAMIDE
  23. VITAMIN D3 [Concomitant]
     Active Substance: CHOLECALCIFEROL
  24. IMBRUVICA [Suspect]
     Active Substance: IBRUTINIB
     Indication: BONE CANCER
     Route: 048
     Dates: start: 20140427, end: 201407
  25. IMBRUVICA [Suspect]
     Active Substance: IBRUTINIB
     Indication: WALDENSTROM^S MACROGLOBULINAEMIA
     Route: 048
  26. COQ10 [Concomitant]
     Active Substance: UBIDECARENONE
  27. IMODIUM [Concomitant]
     Active Substance: LOPERAMIDE HYDROCHLORIDE
  28. FINASTERIDE. [Concomitant]
     Active Substance: FINASTERIDE
  29. POLYSACCHARIDE-IRON COMPLEX [Concomitant]
  30. IMBRUVICA [Suspect]
     Active Substance: IBRUTINIB
     Indication: PROSTATE CANCER
     Route: 048
     Dates: start: 20141125, end: 20150729
  31. ALENDRONATE [Concomitant]
     Active Substance: ALENDRONATE SODIUM
  32. ARICEPT [Concomitant]
     Active Substance: DONEPEZIL HYDROCHLORIDE
  33. TAMIFLU [Concomitant]
     Active Substance: OSELTAMIVIR PHOSPHATE
  34. IMBRUVICA [Suspect]
     Active Substance: IBRUTINIB
     Indication: WALDENSTROM^S MACROGLOBULINAEMIA
     Route: 048
     Dates: start: 20140427, end: 201407
  35. CALCIUM CARBONATE W/COLECALCIFEROL [Concomitant]
     Active Substance: CALCIUM CARBONATE\CHOLECALCIFEROL
  36. ERYTHROPOIETIN [Concomitant]
     Active Substance: ERYTHROPOIETIN
  37. LEUPRORELIN ACETATE [Concomitant]
     Active Substance: LEUPROLIDE ACETATE
  38. IMBRUVICA [Suspect]
     Active Substance: IBRUTINIB
     Indication: PROSTATE CANCER
     Route: 048
     Dates: start: 20140405
  39. IMBRUVICA [Suspect]
     Active Substance: IBRUTINIB
     Indication: BONE CANCER
     Route: 048
     Dates: start: 201407, end: 20140908
  40. ROPINIROLE. [Concomitant]
     Active Substance: ROPINIROLE
  41. ASPIRIN. [Concomitant]
     Active Substance: ASPIRIN
  42. CENTRUM [Concomitant]
     Active Substance: VITAMINS
  43. BACLOFEN. [Concomitant]
     Active Substance: BACLOFEN
  44. FLUOROMETHOLONE. [Concomitant]
     Active Substance: FLUOROMETHOLONE
  45. CALCIUM CARBONATE. [Concomitant]
     Active Substance: CALCIUM CARBONATE
  46. BROMIDEM [Concomitant]

REACTIONS (15)
  - Confusional state [Not Recovered/Not Resolved]
  - Eye haemorrhage [Recovered/Resolved]
  - Blood immunoglobulin M increased [Unknown]
  - Off label use [Unknown]
  - Product use in unapproved indication [Unknown]
  - Pneumonia [Unknown]
  - Urinary tract infection [Unknown]
  - Gastrointestinal haemorrhage [Unknown]
  - Pyrexia [Unknown]
  - Atrial fibrillation [Recovered/Resolved]
  - Sepsis [Unknown]
  - Tremor [Recovered/Resolved]
  - Blood pressure decreased [Unknown]
  - Gait disturbance [Unknown]
  - Epistaxis [Unknown]

NARRATIVE: CASE EVENT DATE: 20140424
